FAERS Safety Report 11981755 (Version 1)
Quarter: 2016Q1

REPORT INFORMATION
  Report Type: Spontaneous
  Country: CA (occurrence: CA)
  Receive Date: 20160131
  Receipt Date: 20160131
  Transmission Date: 20160526
  Serious: Yes (Disabling, Other)
  Sender: FDA-Public Use
  Company Number: CA-TEVA-629243ACC

PATIENT
  Age: 37 Year
  Sex: Male
  Weight: 84 kg

DRUGS (1)
  1. FINASTERIDE. [Suspect]
     Active Substance: FINASTERIDE
     Indication: ALOPECIA

REACTIONS (4)
  - Libido decreased [Not Recovered/Not Resolved]
  - Penis disorder [Not Recovered/Not Resolved]
  - Headache [Not Recovered/Not Resolved]
  - Erectile dysfunction [Not Recovered/Not Resolved]
